FAERS Safety Report 15015252 (Version 2)
Quarter: 2018Q2

REPORT INFORMATION
  Report Type: Spontaneous
  Country: PT (occurrence: PT)
  Receive Date: 20180615
  Receipt Date: 20180626
  Transmission Date: 20180711
  Serious: Yes (Other)
  Sender: FDA-Public Use
  Company Number: PT-TEVA-2018-PT-907794

PATIENT
  Age: 67 Year
  Sex: Male
  Weight: 72 kg

DRUGS (2)
  1. DUTASTERIDA RATIOPHARM [Suspect]
     Active Substance: DUTASTERIDE
     Indication: PROSTATIC SPECIFIC ANTIGEN INCREASED
     Dosage: 1 DOSAGE FORMS DAILY;
     Route: 048
  2. TAMSULOSIN [Suspect]
     Active Substance: TAMSULOSIN
     Indication: PROSTATIC SPECIFIC ANTIGEN INCREASED
     Dosage: 1 MILLIGRAM DAILY;
     Route: 048

REACTIONS (9)
  - Tooth fracture [Unknown]
  - Semen discolouration [Unknown]
  - Semen volume decreased [Unknown]
  - Sexual dysfunction [Unknown]
  - Fall [Unknown]
  - Presyncope [Unknown]
  - Prostatic pain [Unknown]
  - Facial bones fracture [Unknown]
  - Micturition urgency [Unknown]

NARRATIVE: CASE EVENT DATE: 201802
